FAERS Safety Report 15842817 (Version 1)
Quarter: 2019Q1

REPORT INFORMATION
  Report Type: Spontaneous
  Country: DK (occurrence: DK)
  Receive Date: 20190118
  Receipt Date: 20190118
  Transmission Date: 20190417
  Serious: Yes (Other)
  Sender: FDA-Public Use
  Company Number: DK-ARALEZ PHARMACEUTICALS R+D INC.-2019-ARA-000084

PATIENT
  Age: 57 Year
  Sex: Male

DRUGS (1)
  1. METOPROLOL SUCCINATE. [Suspect]
     Active Substance: METOPROLOL SUCCINATE
     Indication: PRODUCT USED FOR UNKNOWN INDICATION
     Dosage: UNK
     Route: 048
     Dates: start: 1994, end: 1999

REACTIONS (6)
  - Hypotension [Unknown]
  - Wrong product administered [Recovered/Resolved]
  - Hypoaesthesia [Unknown]
  - Brain injury [Not Recovered/Not Resolved]
  - Tremor [Unknown]
  - Heart rate decreased [Unknown]

NARRATIVE: CASE EVENT DATE: 1999
